FAERS Safety Report 6097936-5 (Version None)
Quarter: 2009Q1

REPORT INFORMATION
  Report Type: 
  Country: None (occurrence: None)
  Receive Date: 20090227
  Receipt Date: 20090223
  Transmission Date: 20090719
  Serious: Yes (Other)
  Sender: FDA-Public Use
  Company Number: US-ELI_LILLY_AND_COMPANY-US200812005298

PATIENT
  Sex: Male

DRUGS (5)
  1. HUMALOG [Suspect]
     Dosage: UNK, AS NEEDED
     Dates: start: 20040101
  2. ASPIRIN [Concomitant]
     Indication: TRANSIENT ISCHAEMIC ATTACK
     Route: 048
     Dates: start: 20071108
  3. NPH [Concomitant]
     Dosage: 20 U, 2/D
  4. LISINOPRIL [Concomitant]
     Indication: PROPHYLAXIS
     Dosage: 2.5 MG, UNK
     Dates: start: 20081201
  5. LOVASTATIN [Concomitant]
     Dosage: 40 MG, UNK

REACTIONS (2)
  - DIABETIC COMA [None]
  - HYPOGLYCAEMIA [None]
